FAERS Safety Report 12334456 (Version 3)
Quarter: 2016Q2

REPORT INFORMATION
  Report Type: Spontaneous
  Country: FR (occurrence: FR)
  Receive Date: 20160504
  Receipt Date: 20160512
  Transmission Date: 20160815
  Serious: Yes (Hospitalization, Other)
  Sender: FDA-Public Use
  Company Number: FR-MDT-ADR-2016-00797

PATIENT
  Sex: Female

DRUGS (1)
  1. BACLOFEN. [Suspect]
     Active Substance: BACLOFEN
     Route: 065

REACTIONS (5)
  - Delirium [Unknown]
  - Decreased appetite [Unknown]
  - Feeling abnormal [Unknown]
  - Insomnia [Recovered/Resolved]
  - Hallucination [Unknown]
